FAERS Safety Report 7958993-1 (Version None)
Quarter: 2011Q4

REPORT INFORMATION
  Report Type: 
  Country: None (occurrence: None)
  Receive Date: 20111206
  Receipt Date: 20111125
  Transmission Date: 20120403
  Serious: Yes (Other)
  Sender: FDA-Public Use
  Company Number: FR-NOVOPROD-318896

PATIENT

DRUGS (9)
  1. LANTUS [Concomitant]
     Dosage: UNK
     Dates: start: 20050208
  2. REPAGLINIDE [Concomitant]
     Dosage: UNK
     Dates: start: 20100401
  3. ASPIRIN [Concomitant]
     Dosage: UNK
     Dates: start: 20080604
  4. VICTOZA [Suspect]
     Indication: TYPE 2 DIABETES MELLITUS
     Dosage: 1.2 MG, QD
     Route: 058
     Dates: start: 20100706, end: 20101013
  5. METFORMIN HCL [Concomitant]
     Dosage: UNK
     Dates: start: 19980101
  6. DILTIAZEM HCL [Concomitant]
     Dosage: UNK
     Dates: start: 20080604
  7. HYPERIUM [Concomitant]
     Dosage: UNK
     Dates: start: 20090114
  8. LOSAR                              /00661201/ [Concomitant]
     Dosage: UNK
     Dates: start: 20080604
  9. ATORVASTATIN CALCIUM [Concomitant]
     Dosage: UNK
     Dates: start: 20080604

REACTIONS (1)
  - LEUKAEMIA [None]
